FAERS Safety Report 24971867 (Version 2)
Quarter: 2025Q1

REPORT INFORMATION
  Report Type: Report from Study
  Country: US (occurrence: US)
  Receive Date: 20250214
  Receipt Date: 20250321
  Transmission Date: 20250409
  Serious: Yes (Death, Other)
  Sender: JAZZ
  Company Number: US-JAZZ PHARMACEUTICALS-2025-US-004082

PATIENT
  Age: 23 Year
  Sex: Male
  Weight: 49 kg

DRUGS (4)
  1. EPIDIOLEX [Suspect]
     Active Substance: CANNABIDIOL
     Indication: Lennox-Gastaut syndrome
     Dosage: 4 MILLILITER, BID
     Route: 048
     Dates: start: 2019
  2. BRIVIACT [Concomitant]
     Active Substance: BRIVARACETAM
     Indication: Product used for unknown indication
  3. CLOBAZAM [Concomitant]
     Active Substance: CLOBAZAM
     Indication: Product used for unknown indication
  4. DEPAKOTE [Concomitant]
     Active Substance: DIVALPROEX SODIUM
     Indication: Product used for unknown indication

REACTIONS (1)
  - Pneumonia [Fatal]

NARRATIVE: CASE EVENT DATE: 20250119
